FAERS Safety Report 8549802-0 (Version None)
Quarter: 2012Q3

REPORT INFORMATION
  Report Type: 
  Country: None (occurrence: None)
  Receive Date: 20120730
  Receipt Date: 20120726
  Transmission Date: 20120928
  Serious: Yes (Hospitalization)
  Sender: FDA-Public Use
  Company Number: FR-B.I. PHARMACEUTICALS,INC./RIDGEFIELD-2011-FF-00534FF

PATIENT
  Sex: Female
  Weight: 55 kg

DRUGS (3)
  1. PRADAXA [Suspect]
     Dosage: 150 MG
     Route: 048
     Dates: start: 20101120, end: 20101201
  2. KETOPROFEN [Concomitant]
     Dosage: 150 MG
     Dates: start: 20101119, end: 20101127
  3. PRADAXA [Suspect]
     Indication: THROMBOSIS PROPHYLAXIS
     Dosage: 75 MG
     Route: 048
     Dates: start: 20101119, end: 20101119

REACTIONS (1)
  - FEMUR FRACTURE [None]
